FAERS Safety Report 23929123 (Version 1)
Quarter: 2024Q2

REPORT INFORMATION
  Report Type: Spontaneous
  Country: FR (occurrence: FR)
  Receive Date: 20240601
  Receipt Date: 20240601
  Transmission Date: 20240716
  Serious: Yes (Hospitalization)
  Sender: FDA-Public Use
  Company Number: None

PATIENT
  Age: 24 Year
  Sex: Male

DRUGS (1)
  1. HUMIRA [Suspect]
     Active Substance: ADALIMUMAB
     Indication: Juvenile spondyloarthritis
     Route: 058
     Dates: start: 20131125, end: 202310

REACTIONS (1)
  - Mixed anxiety and depressive disorder [Not Recovered/Not Resolved]

NARRATIVE: CASE EVENT DATE: 20210101
